FAERS Safety Report 5210623-8 (Version None)
Quarter: 2006Q4

REPORT INFORMATION
  Report Type: 
  Country: None (occurrence: None)
  Receive Date: 20061106
  Receipt Date: 20060914
  Transmission Date: 20070319
  Serious: No
  Sender: FDA-Public Use
  Company Number: VNL_0215_2006

PATIENT
  Sex: Female

DRUGS (2)
  1. APOKYN [Suspect]
     Dosage: 0.3 ML QDAY SC
     Route: 058
     Dates: start: 20060821
  2. APOKYN [Suspect]
     Dosage: 0.4 ML QDAY SC
     Route: 058
     Dates: start: 20060101

REACTIONS (2)
  - DRUG INEFFECTIVE [None]
  - PHARMACEUTICAL PRODUCT COMPLAINT [None]
